FAERS Safety Report 12755539 (Version 1)
Quarter: 2016Q3

REPORT INFORMATION
  Report Type: Spontaneous
  Country: CH (occurrence: CH)
  Receive Date: 20160916
  Receipt Date: 20160916
  Transmission Date: 20161109
  Serious: Yes (Hospitalization)
  Sender: FDA-Public Use
  Company Number: CH-ASTRAZENECA-2016SE97821

PATIENT
  Sex: Female

DRUGS (2)
  1. OTHER MEDICATION [Interacting]
     Active Substance: UNSPECIFIED INGREDIENT
     Route: 065
  2. FORXIGA [Suspect]
     Active Substance: DAPAGLIFLOZIN
     Route: 048

REACTIONS (2)
  - Drug interaction [Unknown]
  - Dehydration [Unknown]
